FAERS Safety Report 9220988 (Version 1)
Quarter: 2013Q2

REPORT INFORMATION
  Report Type: Spontaneous
  Country: IT (occurrence: IT)
  Receive Date: 20130409
  Receipt Date: 20130409
  Transmission Date: 20140414
  Serious: Yes (Death)
  Sender: FDA-Public Use
  Company Number: PHHY2013IT034112

PATIENT
  Sex: Male

DRUGS (5)
  1. SIMVASTATIN [Suspect]
     Indication: HYPERCHOLESTEROLAEMIA
     Dosage: 40 MG DAILY
     Route: 048
     Dates: start: 20130101, end: 20130401
  2. ALLOPURINOL [Suspect]
     Indication: HYPERURICAEMIA
     Dosage: 75 MG, DAILY
     Route: 048
  3. FUROSEMIDE [Concomitant]
  4. ACETYLSALICYLIC ACID [Concomitant]
  5. TELMISARTAN [Concomitant]

REACTIONS (4)
  - Rhabdomyolysis [Fatal]
  - Renal failure acute [Fatal]
  - Metabolic acidosis [Fatal]
  - Hepatocellular injury [Fatal]
